FAERS Safety Report 6234400-4 (Version None)
Quarter: 2009Q2

REPORT INFORMATION
  Report Type: 
  Country: None (occurrence: None)
  Receive Date: 20090618
  Receipt Date: 20090611
  Transmission Date: 20091009
  Serious: Yes (Hospitalization)
  Sender: FDA-Public Use
  Company Number: US-ROCHE-632167

PATIENT
  Sex: Female
  Weight: 79.4 kg

DRUGS (10)
  1. BONIVA [Suspect]
     Indication: OSTEOPOROSIS
     Dosage: DOSE: 150 (UNITS NOT PROVIDED). LAST DOSE RECEIVED IN FEBRUARY 2009
     Route: 048
     Dates: start: 20060330
  2. FOSAMAX [Suspect]
     Indication: OSTEOPOROSIS
     Dosage: TOOK DRUG IN 1997, THEN ^HOLIDAY IN 2005^ AND THEN RESTARTED IN 2005, DOSE: 70 (UNITS NOT PROVIDED)
     Route: 048
     Dates: start: 19970101, end: 20060101
  3. NORVASC [Concomitant]
  4. METAPROTERENOL [Concomitant]
     Dosage: DRUG: METAPROPAL
  5. COZAAR [Concomitant]
  6. HYDROCHLOROTHIAZIDE [Concomitant]
  7. CALCIUM/VITAMIN D [Concomitant]
  8. SIMVASTATIN [Concomitant]
     Indication: LIPIDS
     Dosage: DOSE: 20 (UNITS NOT PROVIDED)
  9. DIOVAN HCT [Concomitant]
     Indication: HYPERTENSION
  10. LOPEMIN [Concomitant]
     Dosage: DOSE : 25 (UNITS NOT PROVIDED)

REACTIONS (1)
  - FEMUR FRACTURE [None]
